FAERS Safety Report 23063747 (Version 1)
Quarter: 2023Q4

REPORT INFORMATION
  Report Type: Spontaneous
  Country: US (occurrence: US)
  Receive Date: 20231013
  Receipt Date: 20231013
  Transmission Date: 20240109
  Serious: No
  Sender: FDA-Public Use
  Company Number: US-NOVEN PHARMACEUTICALS, INC.-2023-NOV-US000884

PATIENT
  Sex: Female

DRUGS (1)
  1. DEXTROAMPHETAMINE [Suspect]
     Active Substance: DEXTROAMPHETAMINE
     Indication: Product used for unknown indication
     Dosage: UNK, UNKNOWN
     Route: 062

REACTIONS (5)
  - Fatigue [Recovered/Resolved]
  - Adrenal disorder [Recovered/Resolved]
  - Logorrhoea [Recovered/Resolved]
  - Drug effect faster than expected [Recovered/Resolved]
  - Anxiety [Recovered/Resolved]
